FAERS Safety Report 11020303 (Version 2)
Quarter: 2015Q2

REPORT INFORMATION
  Report Type: Spontaneous
  Country: US (occurrence: US)
  Receive Date: 20150413
  Receipt Date: 20150521
  Transmission Date: 20150821
  Serious: No
  Sender: FDA-Public Use
  Company Number: US-BEH-2015050165

PATIENT
  Age: 36 Year
  Sex: Female
  Weight: 104 kg

DRUGS (8)
  1. FIRAZYR [Concomitant]
     Active Substance: ICATIBANT ACETATE
  2. SYNTHROID [Concomitant]
     Active Substance: LEVOTHYROXINE SODIUM
     Route: 048
  3. CVS MELATONIN [Concomitant]
  4. BERINERT [Suspect]
     Active Substance: HUMAN C1-ESTERASE INHIBITOR
     Indication: HEREDITARY ANGIOEDEMA
     Dosage: 500 UNITS
     Route: 042
  5. SODIUM CHLORIDE. [Concomitant]
     Active Substance: SODIUM CHLORIDE
  6. TRANEXAMIC ACID. [Concomitant]
     Active Substance: TRANEXAMIC ACID
     Dosage: POWDER
  7. CENTRUM MULTIVITAMIN [Concomitant]
     Route: 048
  8. EPIPEN [Concomitant]
     Active Substance: EPINEPHRINE

REACTIONS (1)
  - Rash pruritic [Unknown]

NARRATIVE: CASE EVENT DATE: 20150330
